FAERS Safety Report 5777508-X (Version None)
Quarter: 2008Q2

REPORT INFORMATION
  Report Type: 
  Country: None (occurrence: None)
  Receive Date: 20080618
  Receipt Date: 20080605
  Transmission Date: 20081010
  Serious: Yes (Death)
  Sender: FDA-Public Use
  Company Number: CA-ELI_LILLY_AND_COMPANY-CA200806001793

PATIENT
  Age: 26 Year
  Sex: Female

DRUGS (1)
  1. CYMBALTA [Suspect]
     Indication: POSTPARTUM DEPRESSION
     Dosage: 60 MG, UNK
     Dates: start: 20080101

REACTIONS (1)
  - FALL [None]
